APPROVED DRUG PRODUCT: TRITEC
Active Ingredient: RANITIDINE BISMUTH CITRATE
Strength: 400MG
Dosage Form/Route: TABLET;ORAL
Application: N020559 | Product #001
Applicant: GLAXOSMITHKLINE
Approved: Aug 8, 1996 | RLD: No | RS: No | Type: DISCN